FAERS Safety Report 22620196 (Version 1)
Quarter: 2023Q2

REPORT INFORMATION
  Report Type: Spontaneous
  Country: None (occurrence: FR)
  Receive Date: 20230620
  Receipt Date: 20230620
  Transmission Date: 20230721
  Serious: Yes (Other)
  Sender: FDA-Public Use
  Company Number: FR-B.Braun Medical Inc.-2142898

PATIENT
  Age: 28 Year
  Sex: Female
  Weight: 50 kg

DRUGS (9)
  1. CEFAZOLIN [Suspect]
     Active Substance: CEFAZOLIN
     Indication: Antibiotic prophylaxis
     Route: 042
  2. PROPOFOL [Suspect]
     Active Substance: PROPOFOL
  3. DEXAMETHASONE [Suspect]
     Active Substance: DEXAMETHASONE
  4. DROPERIDOL [Suspect]
     Active Substance: DROPERIDOL
  5. PHLOROGLUCINOL [Suspect]
     Active Substance: PHLOROGLUCINOL
  6. KETOPROFEN [Suspect]
     Active Substance: KETOPROFEN
  7. MIDAZOLAM [Suspect]
     Active Substance: MIDAZOLAM
  8. KETAMINE [Suspect]
     Active Substance: KETAMINE
  9. SUFENTANIL [Suspect]
     Active Substance: SUFENTANIL

REACTIONS (1)
  - Lactic acidosis [Recovered/Resolved]
